FAERS Safety Report 26190741 (Version 1)
Quarter: 2025Q4

REPORT INFORMATION
  Report Type: Spontaneous
  Country: US (occurrence: US)
  Receive Date: 20251223
  Receipt Date: 20251223
  Transmission Date: 20260118
  Serious: Yes (Other)
  Sender: RANBAXY
  Company Number: US-SUN PHARMACEUTICAL INDUSTRIES INC-2025R1-543100

PATIENT
  Age: 81 Year
  Sex: Male

DRUGS (6)
  1. AZITHROMYCIN [Suspect]
     Active Substance: AZITHROMYCIN
     Indication: Encephalitis
     Dosage: 500 MILLIGRAM, DAILY
     Route: 065
  2. FLUCONAZOLE [Suspect]
     Active Substance: FLUCONAZOLE
     Indication: Encephalitis
     Dosage: 1000 MILLIGRAM, DAILY
     Route: 065
  3. MILTEFOSINE [Suspect]
     Active Substance: MILTEFOSINE
     Indication: Encephalitis
     Dosage: 50 MILLIGRAM, TID
     Route: 065
  4. FLUCYTOSINE [Suspect]
     Active Substance: FLUCYTOSINE
     Indication: Encephalitis
     Dosage: 3000 MILLIGRAM, QID
     Route: 065
  5. SULFADIAZINE [Suspect]
     Active Substance: SULFADIAZINE
     Indication: Encephalitis
     Dosage: 1500 MILLIGRAM, QID
     Route: 065
  6. ALBENDAZOLE [Suspect]
     Active Substance: ALBENDAZOLE
     Indication: Encephalitis
     Dosage: 400 MILLIGRAM, BID
     Route: 065

REACTIONS (5)
  - Acute kidney injury [Unknown]
  - Toxicity to various agents [Unknown]
  - Liver injury [Unknown]
  - Nausea [Unknown]
  - Vomiting [Unknown]
